FAERS Safety Report 4597301-3 (Version None)
Quarter: 2005Q1

REPORT INFORMATION
  Report Type: 
  Country: None (occurrence: None)
  Receive Date: 20050303
  Receipt Date: 20050228
  Transmission Date: 20050727
  Serious: Yes (Other)
  Sender: FDA-Public Use
  Company Number: 200511788GDDC

PATIENT
  Age: 42 Year
  Sex: Female
  Weight: 65 kg

DRUGS (2)
  1. LANTUS [Suspect]
     Indication: DIABETES MELLITUS INSULIN-DEPENDENT
     Dosage: DOSE UNIT: UNITS
     Route: 058
     Dates: start: 20030401
  2. NOVORAPID [Suspect]
     Dosage: DOSE: 7,10,12; DOSE UNIT: UNITS
     Route: 058
     Dates: start: 20030401

REACTIONS (4)
  - CANDIDIASIS [None]
  - CYSTITIS [None]
  - FUNGAL INFECTION [None]
  - MOUTH ULCERATION [None]
